FAERS Safety Report 8093318-5 (Version None)
Quarter: 2012Q1

REPORT INFORMATION
  Report Type: 
  Country: None (occurrence: None)
  Receive Date: 20120128
  Receipt Date: 20111027
  Transmission Date: 20120608
  Serious: No
  Sender: FDA-Public Use
  Company Number: US-ABBOTT-11P-163-0848050-00

PATIENT
  Sex: Male

DRUGS (4)
  1. HUMIRA [Suspect]
     Indication: PSORIASIS
     Dosage: DAY 1
     Dates: start: 20110722, end: 20110722
  2. HUMIRA [Suspect]
     Dosage: 40 MG WEEKLY
     Dates: start: 20110801
  3. HUMIRA [Suspect]
     Dosage: DAY 8 AND THEN EVERY OTHER WEEK
  4. HYDROXYZINE [Concomitant]
     Indication: PRURITUS
     Dosage: AT BEDTIME, AS NEEDED

REACTIONS (4)
  - INJECTION SITE HAEMATOMA [None]
  - PSORIASIS [None]
  - ERYTHEMA [None]
  - PRURITUS [None]
